FAERS Safety Report 9690896 (Version 3)
Quarter: 2013Q4

REPORT INFORMATION
  Report Type: Report from Study
  Country: US (occurrence: US)
  Receive Date: 20131115
  Receipt Date: 20131206
  Transmission Date: 20140711
  Serious: Yes (Hospitalization)
  Sender: FDA-Public Use
  Company Number: US-PFIZER INC-2013318058

PATIENT
  Age: 8 Year
  Sex: Female
  Weight: 19.5 kg

DRUGS (5)
  1. CRIZOTINIB [Suspect]
     Indication: NEUROBLASTOMA
     Dosage: 200 MG, 2X/DAY
     Route: 048
     Dates: start: 20131015, end: 20131105
  2. BACTRIM [Concomitant]
  3. BENADRYL [Concomitant]
  4. OXYCODONE [Concomitant]
  5. PHENERGAN [Concomitant]

REACTIONS (4)
  - Renal failure acute [Not Recovered/Not Resolved]
  - Hypoxia [Not Recovered/Not Resolved]
  - Pleural effusion [Not Recovered/Not Resolved]
  - Pain [Not Recovered/Not Resolved]
